FAERS Safety Report 24227098 (Version 2)
Quarter: 2024Q4

REPORT INFORMATION
  Report Type: Spontaneous
  Country: US (occurrence: US)
  Receive Date: 20240820
  Receipt Date: 20241011
  Transmission Date: 20250115
  Serious: Yes (Other)
  Sender: BRISTOL MYERS SQUIBB
  Company Number: US-BRISTOL-MYERS SQUIBB COMPANY-2024-129725

PATIENT
  Age: 79 Year
  Sex: Female

DRUGS (2)
  1. LENALIDOMIDE [Suspect]
     Active Substance: LENALIDOMIDE
     Indication: Plasma cell myeloma
     Dosage: TAKE 1 CAPSULE WHOLE BY MOUTH W/ OR W/O FOOD, EVERY MORNING X21 DAYS, 7 DAYS OFF. DON^T START BEFORE
     Route: 048
  2. LENALIDOMIDE [Suspect]
     Active Substance: LENALIDOMIDE
     Dosage: TAKE 1 CAPSULE WHOLE BY MOUTH , WITH OR WITHOUT FOOD, EVERY MORNING FOR 21 DAYS, 7 DAYS OFF
     Route: 048

REACTIONS (2)
  - Wrist fracture [Recovering/Resolving]
  - Nausea [Recovered/Resolved]
